FAERS Safety Report 9376118 (Version 1)
Quarter: 2013Q2

REPORT INFORMATION
  Report Type: Spontaneous
  Country: ES (occurrence: ES)
  Receive Date: 20130630
  Receipt Date: 20130630
  Transmission Date: 20140414
  Serious: Yes (Other)
  Sender: FDA-Public Use
  Company Number: ES-ROCHE-1242776

PATIENT
  Age: 76 Year
  Sex: Male
  Weight: 93 kg

DRUGS (6)
  1. XELODA [Suspect]
     Indication: COLON CANCER
     Dosage: 2000 MG EVERY 12 HOURS FOR 2 WEEKS FOLLOWED BY A 1-WEEK REST PERIOD
     Route: 048
     Dates: start: 20130422, end: 20130426
  2. CITALOPRAM [Concomitant]
     Route: 065
  3. OMEPRAZOLE [Concomitant]
     Route: 048
  4. ATORVASTATIN [Concomitant]
     Route: 048
  5. OXALIPLATIN [Concomitant]
     Indication: COLON CANCER
     Route: 048
     Dates: start: 20130422
  6. ADIRO [Concomitant]
     Route: 048

REACTIONS (1)
  - Urinary incontinence [Recovered/Resolved]
